FAERS Safety Report 18387805 (Version 3)
Quarter: 2022Q3

REPORT INFORMATION
  Report Type: Report from Study
  Country: US (occurrence: US)
  Receive Date: 20201015
  Receipt Date: 20220802
  Transmission Date: 20221026
  Serious: No
  Sender: FDA-Public Use
  Company Number: NVSC2020US272094

PATIENT
  Sex: Female

DRUGS (2)
  1. COSENTYX [Suspect]
     Active Substance: SECUKINUMAB
     Indication: Psoriasis
     Dosage: 300 MG, QMO
     Route: 058
     Dates: start: 20200630
  2. COSENTYX [Suspect]
     Active Substance: SECUKINUMAB
     Indication: Psoriasis
     Dosage: UNK
     Route: 065
     Dates: start: 20200630

REACTIONS (6)
  - Rash [Unknown]
  - Erythema [Unknown]
  - Anxiety [Unknown]
  - Skin exfoliation [Unknown]
  - Pain in extremity [Unknown]
  - Therapeutic product effect decreased [Not Recovered/Not Resolved]
